FAERS Safety Report 23728676 (Version 1)
Quarter: 2024Q2

REPORT INFORMATION
  Report Type: Spontaneous
  Country: CA (occurrence: CA)
  Receive Date: 20240410
  Receipt Date: 20240410
  Transmission Date: 20240716
  Serious: Yes (Death)
  Sender: FDA-Public Use
  Company Number: CA-BAYER-2024A049667

PATIENT
  Age: 87 Year
  Sex: Female

DRUGS (2)
  1. EYLEA [Suspect]
     Active Substance: AFLIBERCEPT
     Indication: Age-related macular degeneration
     Dosage: 2 MG, 40 MG/ML
     Route: 031
     Dates: start: 20181221, end: 20240318
  2. UNSPECIFIED INGREDIENT [Concomitant]
     Active Substance: UNSPECIFIED INGREDIENT
     Indication: Age-related macular degeneration
     Dates: start: 20181221, end: 20240318

REACTIONS (1)
  - Death [Fatal]

NARRATIVE: CASE EVENT DATE: 20240326
